FAERS Safety Report 6069363-8 (Version None)
Quarter: 2009Q1

REPORT INFORMATION
  Report Type: 
  Country: None (occurrence: None)
  Receive Date: 20090206
  Receipt Date: 20090130
  Transmission Date: 20090719
  Serious: Yes (Disabling)
  Sender: FDA-Public Use
  Company Number: PT-PFIZER INC-2009166073

PATIENT

DRUGS (3)
  1. LYRICA [Suspect]
     Indication: CARPAL TUNNEL SYNDROME
     Dosage: 75 MG, UNK
     Route: 048
     Dates: start: 20081119
  2. LYRICA [Suspect]
     Dosage: 50 MG, UNK
     Route: 048
     Dates: start: 20081115, end: 20081118
  3. LYRICA [Suspect]
     Dosage: 25 MG, UNK
     Route: 048
     Dates: start: 20081111, end: 20081114

REACTIONS (3)
  - ASTHENIA [None]
  - COUGH [None]
  - MYALGIA [None]
